FAERS Safety Report 5279027-6 (Version None)
Quarter: 2007Q1

REPORT INFORMATION
  Report Type: 
  Country: None (occurrence: None)
  Receive Date: 20070328
  Receipt Date: 20061219
  Transmission Date: 20070707
  Serious: No
  Sender: FDA-Public Use
  Company Number: US-AMGEN-KDL204089

PATIENT
  Sex: Female
  Weight: 47.7 kg

DRUGS (4)
  1. NEULASTA [Suspect]
     Indication: CHEMOTHERAPY
     Route: 058
     Dates: start: 20061212, end: 20061212
  2. ALIMTA [Concomitant]
  3. FOLATE SODIUM [Concomitant]
     Dates: start: 20061210
  4. VITAMIN B-12 [Concomitant]
     Dates: start: 20061208

REACTIONS (5)
  - ANAEMIA [None]
  - BONE PAIN [None]
  - COUGH [None]
  - FATIGUE [None]
  - PHARYNGOLARYNGEAL PAIN [None]
